FAERS Safety Report 17508882 (Version 1)
Quarter: 2020Q1

REPORT INFORMATION
  Report Type: Spontaneous
  Country: US (occurrence: US)
  Receive Date: 20200305
  Receipt Date: 20200305
  Transmission Date: 20200409
  Serious: Yes (Other)
  Sender: FDA-Public Use
  Company Number: None

PATIENT
  Sex: Male

DRUGS (1)
  1. IBUPROPHEN 600MG [Suspect]
     Active Substance: IBUPROFEN

REACTIONS (2)
  - Drug ineffective [None]
  - Inadequate analgesia [None]
